FAERS Safety Report 18163854 (Version 1)
Quarter: 2020Q3

REPORT INFORMATION
  Report Type: Spontaneous
  Country: FI (occurrence: FI)
  Receive Date: 20200818
  Receipt Date: 20200818
  Transmission Date: 20201103
  Serious: Yes (Hospitalization)
  Sender: FDA-Public Use
  Company Number: FI-MYLANLABS-2020M1071933

PATIENT
  Age: 50 Year
  Sex: Female

DRUGS (6)
  1. FUNGORIN [Concomitant]
     Active Substance: TERBINAFINE HYDROCHLORIDE
     Indication: ONYCHOMYCOSIS
     Dosage: 250,MG,DAILY
     Route: 048
     Dates: start: 20200605
  2. LEPONEX [Suspect]
     Active Substance: CLOZAPINE
     Indication: SCHIZOPHRENIA
     Dosage: 150,MG,DAILY
     Route: 048
     Dates: start: 20200601, end: 20200802
  3. PANADOL FORTE                      /00020001/ [Concomitant]
     Active Substance: ACETAMINOPHEN
     Indication: PAIN
     Dosage: UNK
     Route: 048
  4. PANTOPRAZOLE [Concomitant]
     Active Substance: PANTOPRAZOLE
     Indication: DYSPEPSIA
     Dosage: 40,MG,DAILY
     Route: 048
     Dates: start: 20200427
  5. PERATSIN [Concomitant]
     Active Substance: PERPHENAZINE
     Indication: SCHIZOPHRENIA
     Dosage: 12,MG,DAILY
     Route: 048
     Dates: start: 2015, end: 20200703
  6. PEGORION [Concomitant]
     Active Substance: POLYETHYLENE GLYCOL 4000
     Indication: CONSTIPATION
     Dosage: 12,G,DAILY
     Route: 048

REACTIONS (4)
  - Neutrophil count increased [Recovering/Resolving]
  - Myocarditis [Recovering/Resolving]
  - Pyelonephritis [Recovering/Resolving]
  - White blood cell count increased [Recovering/Resolving]

NARRATIVE: CASE EVENT DATE: 20200616
